FAERS Safety Report 5254391-2 (Version None)
Quarter: 2007Q1

REPORT INFORMATION
  Report Type: 
  Country: None (occurrence: None)
  Receive Date: 20070302
  Receipt Date: 20070221
  Transmission Date: 20070707
  Serious: Yes (Hospitalization)
  Sender: FDA-Public Use
  Company Number: US-ROCHE-483654

PATIENT
  Age: 51 Year
  Sex: Female
  Weight: 78.5 kg

DRUGS (13)
  1. PEG-INTERFERON ALFA 2A (RO 25-8310) [Suspect]
     Route: 058
     Dates: start: 20060616
  2. RIBAVIRIN [Suspect]
     Route: 048
     Dates: start: 20060616
  3. RABEPRAZOLE SODIUM [Concomitant]
     Dates: start: 20051021
  4. ESOMEPRAZOLE MAGNESIUM [Concomitant]
     Dates: start: 20040115, end: 20060915
  5. ACETAMINOPHEN [Concomitant]
     Dates: start: 20060115
  6. CELEBREX [Concomitant]
     Dates: start: 20051021
  7. TRAMADOL HCL [Concomitant]
     Dates: start: 20060308
  8. CELEXA [Concomitant]
     Dates: start: 20060427
  9. HYDROCORTISONE [Concomitant]
     Dates: start: 20060825
  10. BACLOFEN [Concomitant]
     Dates: start: 20061110
  11. DIPHENHYDRAMINE HCL [Concomitant]
     Dates: start: 20060801
  12. LIPITOR [Concomitant]
     Dates: start: 20061208
  13. OMEPRAZOLE [Concomitant]
     Dates: start: 20061204

REACTIONS (6)
  - DYSARTHRIA [None]
  - DYSPNOEA [None]
  - HAEMOGLOBIN DECREASED [None]
  - HYPOTHYROIDISM [None]
  - MUSCULAR WEAKNESS [None]
  - SWELLING FACE [None]
